FAERS Safety Report 6355226-7 (Version None)
Quarter: 2009Q3

REPORT INFORMATION
  Report Type: 
  Country: None (occurrence: None)
  Receive Date: 20090914
  Receipt Date: 20090903
  Transmission Date: 20100115
  Serious: Yes (Other)
  Sender: FDA-Public Use
  Company Number: US-JNJCH-2009023862

PATIENT
  Age: 54 Year
  Sex: Male
  Weight: 85.3 kg

DRUGS (1)
  1. COOL MINT LISTERINE [Suspect]
     Indication: DENTAL DISORDER PROPHYLAXIS
     Dosage: TEXT:A CAPFUL TWICE DAILY
     Route: 048

REACTIONS (2)
  - ORAL INFECTION [None]
  - PHARYNGITIS [None]
